FAERS Safety Report 20130401 (Version 1)
Quarter: 2021Q4

REPORT INFORMATION
  Report Type: Spontaneous
  Country: SE (occurrence: SE)
  Receive Date: 20211130
  Receipt Date: 20211130
  Transmission Date: 20220304
  Serious: Yes (Death)
  Sender: FDA-Public Use
  Company Number: SE-ROCHE-2926905

PATIENT
  Age: 59 Year

DRUGS (4)
  1. MYCOPHENOLATE MOFETIL [Suspect]
     Active Substance: MYCOPHENOLATE MOFETIL
     Indication: Immunosuppression
     Dosage: 1 GRAM
     Route: 048
  2. RITUXIMAB [Suspect]
     Active Substance: RITUXIMAB
     Indication: Immunosuppression
     Dosage: 375 MILLIGRAM/SQ. METER(AS A SINGLE DOSE DAY 0 PRIOR TO TRANSPLANTATION.)
     Route: 042
  3. PREDNISOLONE [Suspect]
     Active Substance: PREDNISOLONE
     Indication: Immunosuppression
     Dosage: 100 MILLIGRAM(STARTING ON POD 1, TAPERED TO 5 MG BY SIX MONTHS)
     Route: 048
  4. TACROLIMUS [Suspect]
     Active Substance: TACROLIMUS
     Indication: Immunosuppression
     Dosage: UNK(STARTING ON POD 1, WITH AN INITIAL TARGET TROUGH LEVEL OF 10-15 MICROG/L)
     Route: 048

REACTIONS (2)
  - Multiple organ dysfunction syndrome [Fatal]
  - Sepsis [Fatal]
